FAERS Safety Report 11704263 (Version 1)
Quarter: 2015Q4

REPORT INFORMATION
  Report Type: Report from Study
  Country: US (occurrence: US)
  Receive Date: 20151106
  Receipt Date: 20151106
  Transmission Date: 20160304
  Serious: Yes (Death, Hospitalization)
  Sender: FDA-Public Use
  Company Number: US-BIOVITRUM-2015US0651

PATIENT
  Sex: Female

DRUGS (4)
  1. CYCLOSPORIN [Concomitant]
     Active Substance: CYCLOSPORINE
  2. KINERET [Suspect]
     Active Substance: ANAKINRA
     Indication: HISTIOCYTOSIS HAEMATOPHAGIC
  3. ETOPOSIDE. [Concomitant]
     Active Substance: ETOPOSIDE
  4. KINERET [Suspect]
     Active Substance: ANAKINRA
     Indication: JUVENILE IDIOPATHIC ARTHRITIS
     Route: 058
     Dates: start: 20150912

REACTIONS (4)
  - Histiocytosis haematophagic [Fatal]
  - Seizure [Fatal]
  - Drug ineffective [None]
  - Multi-organ failure [Fatal]
